FAERS Safety Report 7676394-0 (Version None)
Quarter: 2011Q3

REPORT INFORMATION
  Report Type: 
  Country: None (occurrence: None)
  Receive Date: 20110811
  Receipt Date: 20110803
  Transmission Date: 20111222
  Serious: Yes (Death, Life-Threatening, Hospitalization)
  Sender: FDA-Public Use
  Company Number: DE-CELGENEUS-062-21880-08100444

PATIENT
  Age: 51 Year
  Sex: Female
  Weight: 55.1 kg

DRUGS (7)
  1. REVLIMID [Suspect]
     Indication: ACUTE MYELOID LEUKAEMIA
     Dosage: 10 MILLIGRAM
     Route: 048
     Dates: start: 20080812, end: 20080821
  2. MYFORTIC [Concomitant]
     Indication: PROPHYLAXIS AGAINST GRAFT VERSUS HOST DISEASE
     Dosage: 10 MILLIGRAM
     Route: 048
     Dates: start: 20080801, end: 20080913
  3. REVLIMID [Suspect]
  4. CELLCEPT [Concomitant]
     Route: 065
  5. ZOVIRAX [Concomitant]
     Indication: PROPHYLAXIS
     Dosage: 600 MILLIGRAM
     Route: 065
     Dates: start: 20080501, end: 20080101
  6. AMOXICILLIN [Concomitant]
     Indication: PROPHYLAXIS
     Dosage: 12 GRAM
     Route: 065
     Dates: start: 20080801, end: 20080101
  7. PREDNISOLONE [Concomitant]
     Indication: PROPHYLAXIS AGAINST GRAFT VERSUS HOST DISEASE
     Dosage: 10 MILLIGRAM
     Route: 065
     Dates: start: 20080801, end: 20080913

REACTIONS (2)
  - ACUTE GRAFT VERSUS HOST DISEASE IN INTESTINE [None]
  - THROMBOTIC THROMBOCYTOPENIC PURPURA [None]
